FAERS Safety Report 7713810-X (Version None)
Quarter: 2011Q3

REPORT INFORMATION
  Report Type: 
  Country: None (occurrence: None)
  Receive Date: 20110826
  Receipt Date: 20110823
  Transmission Date: 20111222
  Serious: Yes (Other)
  Sender: FDA-Public Use
  Company Number: US-PFIZER INC-2011150404

PATIENT
  Sex: Male
  Weight: 94.331 kg

DRUGS (1)
  1. CHANTIX [Suspect]
     Indication: SMOKING CESSATION THERAPY
     Dosage: 0.5 MG, 1X/DAY
     Route: 048
     Dates: start: 20110612, end: 20110616

REACTIONS (5)
  - AGGRESSION [None]
  - NAUSEA [None]
  - DEPRESSION [None]
  - INSOMNIA [None]
  - ANXIETY [None]
